FAERS Safety Report 15181157 (Version 4)
Quarter: 2019Q1

REPORT INFORMATION
  Report Type: Spontaneous
  Country: US (occurrence: US)
  Receive Date: 20180723
  Receipt Date: 20190214
  Transmission Date: 20190417
  Serious: Yes (Life-Threatening, Other)
  Sender: FDA-Public Use
  Company Number: US-COOPERSURGICAL, INC.-US-2018CPS032506

PATIENT

DRUGS (1)
  1. PARAGARD T 380A [Suspect]
     Active Substance: COPPER
     Indication: CONTRACEPTION
     Dosage: UNK
     Route: 015
     Dates: start: 20161118, end: 20170601

REACTIONS (15)
  - Mental disorder [Recovered/Resolved]
  - Anxiety [Unknown]
  - Tension [Recovered/Resolved]
  - Depression [Recovered/Resolved]
  - Paranoia [Recovered/Resolved]
  - Schizophreniform disorder [Recovered/Resolved]
  - Tachyphrenia [Recovered/Resolved]
  - Hallucination, auditory [Unknown]
  - Apparent death [Unknown]
  - Palpitations [Recovered/Resolved]
  - Cardiac murmur [Unknown]
  - Vaginal haemorrhage [Recovered/Resolved]
  - Suicidal ideation [Recovered/Resolved]
  - Impaired quality of life [Unknown]
  - Toxicity to various agents [Unknown]

NARRATIVE: CASE EVENT DATE: 201611
